FAERS Safety Report 5117805-4 (Version None)
Quarter: 2006Q3

REPORT INFORMATION
  Report Type: 
  Country: None (occurrence: None)
  Receive Date: 20060925
  Receipt Date: 20060915
  Transmission Date: 20061208
  Serious: Yes (Hospitalization)
  Sender: FDA-Public Use
  Company Number: 2006-02403

PATIENT
  Age: 67 Year
  Sex: Female

DRUGS (1)
  1. VELCADE [Suspect]
     Indication: NON-HODGKIN'S LYMPHOMA
     Dosage: 2.70 MG, INTRAVENOUS
     Route: 042
     Dates: start: 20060519, end: 20060817

REACTIONS (3)
  - BRONCHITIS [None]
  - DIFFUSE ALVEOLAR DAMAGE [None]
  - OBSTRUCTIVE AIRWAYS DISORDER [None]
